FAERS Safety Report 11682733 (Version 2)
Quarter: 2015Q4

REPORT INFORMATION
  Report Type: Spontaneous
  Country: US (occurrence: US)
  Receive Date: 20151029
  Receipt Date: 20151110
  Transmission Date: 20160304
  Serious: Yes (Hospitalization, Other)
  Sender: FDA-Public Use
  Company Number: US-AMGEN-USASP2015112841

PATIENT
  Age: 64 Year
  Sex: Female
  Weight: 111.57 kg

DRUGS (3)
  1. PROLIA [Suspect]
     Active Substance: DENOSUMAB
     Dosage: 60 MG, Q6MO
     Route: 058
     Dates: start: 20150319
  2. PROLIA [Suspect]
     Active Substance: DENOSUMAB
     Indication: OSTEOPOROSIS
     Dosage: 60 MG, Q6MO
     Route: 058
     Dates: start: 20130819
  3. PROLIA [Suspect]
     Active Substance: DENOSUMAB
     Dosage: 60 MG, Q6MO
     Route: 058
     Dates: start: 20140221

REACTIONS (29)
  - Fibula fracture [Unknown]
  - Abdominal distension [Recovered/Resolved]
  - Chronic kidney disease [Unknown]
  - Pyrexia [Recovered/Resolved]
  - Avulsion fracture [Unknown]
  - Tibia fracture [Unknown]
  - Tendon calcification [Unknown]
  - Gout [Unknown]
  - Osteoarthritis [Unknown]
  - Confusional state [Unknown]
  - Epiphyseal fracture [Unknown]
  - Coronary artery disease [Unknown]
  - Insomnia [Unknown]
  - Depression [Unknown]
  - Type 1 diabetes mellitus [Unknown]
  - Seizure [Unknown]
  - Obesity [Unknown]
  - Hypertension [Unknown]
  - Gastrooesophageal reflux disease [Unknown]
  - Metabolic encephalopathy [Unknown]
  - Cardiac failure congestive [Unknown]
  - Sleep apnoea syndrome [Unknown]
  - Ankle fracture [Unknown]
  - Constipation [Unknown]
  - Escherichia urinary tract infection [Unknown]
  - Fall [Unknown]
  - Exostosis [Unknown]
  - Anxiety [Unknown]
  - Contusion [Unknown]

NARRATIVE: CASE EVENT DATE: 200510
